FAERS Safety Report 17859182 (Version 2)
Quarter: 2020Q2

REPORT INFORMATION
  Report Type: Report from Study
  Country: CZ (occurrence: CZ)
  Receive Date: 20200604
  Receipt Date: 20200610
  Transmission Date: 20200714
  Serious: Yes (Other)
  Sender: FDA-Public Use
  Company Number: NVSC2020CZ138256

PATIENT
  Age: 1 Year
  Sex: Male
  Weight: 9.6 kg

DRUGS (1)
  1. ONASEMNOGENE ABEPARVOVEC [Suspect]
     Active Substance: ONASEMNOGENE ABEPARVOVEC
     Indication: PRODUCT USED FOR UNKNOWN INDICATION
     Dosage: 55 ML, ONCE/SINGLE
     Route: 042
     Dates: start: 20200514

REACTIONS (5)
  - Vomiting [Unknown]
  - Platelet count decreased [Unknown]
  - Thrombocytopenia [Unknown]
  - Pyrexia [Unknown]
  - Liver function test increased [Unknown]

NARRATIVE: CASE EVENT DATE: 202005
